FAERS Safety Report 6453027-2 (Version None)
Quarter: 2009Q4

REPORT INFORMATION
  Report Type: 
  Country: None (occurrence: None)
  Receive Date: 20091124
  Receipt Date: 20090710
  Transmission Date: 20100525
  Serious: No
  Sender: FDA-Public Use
  Company Number: US-ABBOTT-09P-163-0585092-00

PATIENT
  Sex: Male
  Weight: 86.26 kg

DRUGS (11)
  1. TRICOR [Suspect]
     Indication: BLOOD CHOLESTEROL INCREASED
     Dates: end: 20060101
  2. TRICOR [Suspect]
     Indication: BLOOD TRIGLYCERIDES INCREASED
  3. NIASPAN [Concomitant]
     Indication: BLOOD TRIGLYCERIDES INCREASED
     Dates: start: 20090501
  4. PAXIL [Concomitant]
     Indication: DEPRESSION
  5. PAXIL [Concomitant]
     Indication: PANIC ATTACK
  6. ASPIRIN [Concomitant]
     Indication: CARDIAC DISORDER
  7. XANAX [Concomitant]
     Indication: ANXIETY
  8. CLARITIN [Concomitant]
     Indication: HYPERSENSITIVITY
  9. ZANTAC [Concomitant]
     Indication: ADVERSE DRUG REACTION
  10. ATENOLOL [Concomitant]
     Indication: HYPERTENSION
  11. FLONASE [Concomitant]
     Indication: HYPERSENSITIVITY
     Dosage: SPRAY

REACTIONS (2)
  - ABASIA [None]
  - ARTHRALGIA [None]
